FAERS Safety Report 20955412 (Version 1)
Quarter: 2022Q2

REPORT INFORMATION
  Report Type: Report from Study
  Country: AU (occurrence: AU)
  Receive Date: 20220614
  Receipt Date: 20220614
  Transmission Date: 20220720
  Serious: Yes (Other)
  Sender: FDA-Public Use
  Company Number: AU-ABBVIE-22K-008-4429541-00

PATIENT
  Sex: Male

DRUGS (2)
  1. SKYRIZI [Suspect]
     Active Substance: RISANKIZUMAB-RZAA
     Indication: Product used for unknown indication
     Route: 058
  2. COVID-19 VACCINE NOS [Suspect]
     Active Substance: COVID-19 VACCINE NOS
     Indication: COVID-19 immunisation
     Dosage: COVID VACCINE
     Route: 030

REACTIONS (9)
  - Accident [Unknown]
  - Medical device site infection [Unknown]
  - Medical device implantation [Unknown]
  - Epistaxis [Unknown]
  - Swelling [Unknown]
  - Migraine [Unknown]
  - Facial discomfort [Unknown]
  - Limb discomfort [Unknown]
  - Immunodeficiency [Unknown]
